FAERS Safety Report 5268581-6 (Version None)
Quarter: 2007Q1

REPORT INFORMATION
  Report Type: 
  Country: None (occurrence: None)
  Receive Date: 20070319
  Receipt Date: 20070309
  Transmission Date: 20070707
  Serious: Yes (Hospitalization)
  Sender: FDA-Public Use
  Company Number: GB-BRISTOL-MYERS SQUIBB COMPANY-13716402

PATIENT
  Age: 70 Year
  Sex: Male

DRUGS (11)
  1. CETUXIMAB [Suspect]
     Indication: COLORECTAL CANCER
     Route: 042
     Dates: start: 20061201, end: 20061201
  2. OXALIPLATIN [Suspect]
     Indication: COLORECTAL CANCER
     Route: 042
     Dates: start: 20061124, end: 20061124
  3. FLUOROURACIL [Suspect]
     Indication: COLORECTAL CANCER
     Route: 042
     Dates: start: 20061124, end: 20061124
  4. HUMULIN R [Concomitant]
     Route: 058
  5. BISOPROLOL [Concomitant]
     Route: 048
  6. SIMVASTATIN [Concomitant]
     Route: 048
  7. PYRIDOXINE HCL [Concomitant]
     Route: 048
     Dates: start: 20060928
  8. INDAPAMIDE [Concomitant]
     Route: 048
  9. TAMSULOSIN HCL [Concomitant]
     Route: 048
  10. LOSARTAN POSTASSIUM [Concomitant]
     Route: 048
  11. LANSOPRAZOLE [Concomitant]
     Route: 048

REACTIONS (3)
  - BLINDNESS [None]
  - HEMIPARESIS [None]
  - NIGHT SWEATS [None]
